FAERS Safety Report 7274678-1 (Version None)
Quarter: 2011Q1

REPORT INFORMATION
  Report Type: 
  Country: None (occurrence: None)
  Receive Date: 20110204
  Receipt Date: 20110127
  Transmission Date: 20110831
  Serious: Yes (Death)
  Sender: FDA-Public Use
  Company Number: US-GENZYME-CLOF-1001170

PATIENT
  Sex: Male

DRUGS (4)
  1. TACROLIMUS [Concomitant]
     Indication: PROPHYLAXIS AGAINST GRAFT VERSUS HOST DISEASE
     Dosage: UNK
  2. CLOLAR [Suspect]
     Indication: ACUTE LEUKAEMIA
     Dosage: UNK UNK, QDX5
     Route: 042
  3. THIOTEPA [Suspect]
     Indication: ACUTE LEUKAEMIA
     Dosage: 10 MG/KG, QD
     Route: 042
  4. MELPHALAN [Suspect]
     Indication: ACUTE LEUKAEMIA
     Dosage: 70 MG/M2, QD
     Route: 042

REACTIONS (1)
  - DISEASE PROGRESSION [None]
